FAERS Safety Report 6220201-X (Version None)
Quarter: 2009Q2

REPORT INFORMATION
  Report Type: 
  Country: None (occurrence: None)
  Receive Date: 20090605
  Receipt Date: 20090520
  Transmission Date: 20091009
  Serious: Yes (Death, Hospitalization)
  Sender: FDA-Public Use
  Company Number: APP200900288

PATIENT
  Age: 59 Year
  Sex: Male

DRUGS (5)
  1. CHLORAMPHENICOL SODIUM SUCCINATE [Suspect]
     Indication: PNEUMONIA KLEBSIELLA
     Dosage: INTRAVENOUS
     Route: 042
  2. VANCOMYCIN HYDROCHLORIDE [Suspect]
     Indication: PNEUMONIA KLEBSIELLA
     Dosage: DISCONTINUED AFTER GRAM STAIN RESULTS., INTRAVENOUS
     Route: 042
  3. GENTAMICIN INJECTION, USP [Suspect]
     Indication: PNEUMONIA KLEBSIELLA
     Dosage: INTRAVENTRICULAR ADMINISTRATION
  4. CEPHALOSPORIN [Suspect]
     Indication: PNEUMONIA KLEBSIELLA
     Dosage: INTRAVENOUS
     Route: 042
  5. METRONIDAZOLE (METRONIDAZOLE) [Suspect]
     Indication: PNEUMONIA KLEBSIELLA
     Dosage: INTRAVENOUS
     Route: 042

REACTIONS (6)
  - BRAIN ABSCESS [None]
  - BRAIN OEDEMA [None]
  - EMPYEMA [None]
  - HEMIANOPIA HOMONYMOUS [None]
  - KLEBSIELLA INFECTION [None]
  - SEPSIS [None]
